FAERS Safety Report 14540186 (Version 3)
Quarter: 2018Q2

REPORT INFORMATION
  Report Type: Report from Study
  Country: SE (occurrence: SE)
  Receive Date: 20180216
  Receipt Date: 20180413
  Transmission Date: 20180711
  Serious: Yes (Life-Threatening, Hospitalization, Other)
  Sender: FDA-Public Use
  Company Number: SE-ASTELLAS-2018US008565

PATIENT
  Age: 48 Year
  Sex: Male

DRUGS (2)
  1. TACROLIMUS. [Suspect]
     Active Substance: TACROLIMUS
     Indication: PRODUCT USED FOR UNKNOWN INDICATION
     Route: 048
     Dates: start: 20170830
  2. TACROLIMUS. [Suspect]
     Active Substance: TACROLIMUS
     Dosage: 2 MG + 1 MG, THRICE DAILY
     Route: 048

REACTIONS (7)
  - Bronchial anastomosis complication [Recovered/Resolved with Sequelae]
  - Bronchial anastomosis complication [Recovered/Resolved with Sequelae]
  - Renal impairment [Recovered/Resolved]
  - Bronchial anastomosis complication [Recovered/Resolved with Sequelae]
  - Transplant rejection [Recovered/Resolved]
  - Respiratory failure [Recovered/Resolved]
  - Bronchial anastomosis complication [Recovered/Resolved with Sequelae]

NARRATIVE: CASE EVENT DATE: 20170904
